FAERS Safety Report 5324306-7 (Version None)
Quarter: 2007Q2

REPORT INFORMATION
  Report Type: 
  Country: None (occurrence: None)
  Receive Date: 20070514
  Receipt Date: 20070108
  Transmission Date: 20071010
  Serious: Yes (Other)
  Sender: FDA-Public Use
  Company Number: IT-BOEHRINGER INGELHEIM PHARMACEUTICALS, INC.-2006-IT-00168IT

PATIENT
  Sex: Female
  Weight: 2.4 kg

DRUGS (5)
  1. NEVIRAPINE [Suspect]
     Indication: PROPHYLAXIS AGAINST HIV INFECTION
     Route: 048
     Dates: start: 20040429, end: 20040616
  2. AZT/3TC [Concomitant]
     Indication: PROPHYLAXIS AGAINST HIV INFECTION
     Route: 048
     Dates: start: 20040429, end: 20040616
  3. LAMIVUDINE [Concomitant]
     Indication: PROPHYLAXIS AGAINST HIV INFECTION
     Route: 048
     Dates: start: 20040616, end: 20040928
  4. LPV/R [Concomitant]
     Indication: PROPHYLAXIS AGAINST HIV INFECTION
     Route: 048
     Dates: start: 20040616, end: 20040928
  5. TDF [Concomitant]
     Indication: PROPHYLAXIS AGAINST HIV INFECTION

REACTIONS (1)
  - HUMAN IMMUNODEFICIENCY VIRUS TRANSMISSION [None]
